FAERS Safety Report 7515576-5 (Version None)
Quarter: 2011Q2

REPORT INFORMATION
  Report Type: 
  Country: None (occurrence: None)
  Receive Date: 20110601
  Receipt Date: 20100712
  Transmission Date: 20111010
  Serious: Yes (Death)
  Sender: FDA-Public Use
  Company Number: US-PFIZER INC-2010086621

PATIENT
  Sex: Female

DRUGS (1)
  1. CHANTIX [Suspect]
     Indication: SMOKING CESSATION THERAPY
     Dosage: 0.5MG/1MG
     Dates: start: 20061201, end: 20070910

REACTIONS (3)
  - IRRITABILITY [None]
  - COMPLETED SUICIDE [None]
  - ABNORMAL BEHAVIOUR [None]
